FAERS Safety Report 9858435 (Version 1)
Quarter: 2014Q1

REPORT INFORMATION
  Report Type: Spontaneous
  Country: US (occurrence: US)
  Receive Date: 20140131
  Receipt Date: 20140131
  Transmission Date: 20141002
  Serious: Yes (Other)
  Sender: FDA-Public Use
  Company Number: US-ASTRAZENECA-2014SE05832

PATIENT
  Age: 59 Year
  Sex: Female
  Weight: 81.2 kg

DRUGS (18)
  1. FASLODEX [Suspect]
     Indication: BREAST CANCER METASTATIC
     Route: 030
     Dates: start: 201305
  2. LISINOPRIL [Suspect]
     Indication: HYPERTENSION
     Route: 048
  3. LETROZOLE [Concomitant]
     Indication: BREAST CANCER
     Route: 048
     Dates: start: 201306
  4. LIPITOR [Concomitant]
     Indication: BLOOD CHOLESTEROL ABNORMAL
     Route: 048
  5. CYMBALTA [Concomitant]
     Indication: NEURALGIA
     Route: 048
     Dates: start: 201306
  6. LEXAPRO [Concomitant]
     Indication: NEURALGIA
     Route: 048
  7. LEXAPRO [Concomitant]
     Indication: DEPRESSION
     Route: 048
  8. LYRICA [Concomitant]
     Indication: NEURALGIA
     Route: 048
  9. FENTANYL [Concomitant]
     Indication: PAIN
     Dosage: 25 MCG Q3D
     Route: 061
     Dates: start: 201306
  10. PROTONIX [Concomitant]
     Indication: GASTROOESOPHAGEAL REFLUX DISEASE
     Route: 048
     Dates: start: 2013
  11. LORAZEPAM [Concomitant]
     Indication: ANXIETY
     Dosage: PRN
     Route: 048
  12. HYDROCODONE [Concomitant]
     Indication: PAIN
     Dosage: PRN
     Route: 048
     Dates: start: 201204
  13. OXYCODONE [Concomitant]
     Indication: PAIN
     Dosage: PRN
     Route: 048
     Dates: start: 201204
  14. IRON [Concomitant]
     Indication: MINERAL SUPPLEMENTATION
     Route: 048
  15. VITAMIN C [Concomitant]
     Indication: VITAMIN SUPPLEMENTATION
     Route: 048
  16. VITAMIN D [Concomitant]
     Indication: VITAMIN SUPPLEMENTATION
     Route: 048
  17. CALCIUM [Concomitant]
     Indication: MINERAL SUPPLEMENTATION
     Route: 048
  18. B12 [Concomitant]
     Indication: VITAMIN SUPPLEMENTATION
     Route: 048

REACTIONS (2)
  - Tumour marker increased [Not Recovered/Not Resolved]
  - Neuralgia [Unknown]
